FAERS Safety Report 24918377 (Version 5)
Quarter: 2025Q1

REPORT INFORMATION
  Report Type: Spontaneous
  Country: US (occurrence: US)
  Receive Date: 20250203
  Receipt Date: 20250324
  Transmission Date: 20250408
  Serious: No
  Sender: PFIZER
  Company Number: US-PFIZER INC-202500018336

PATIENT
  Age: 12 Year
  Sex: Female

DRUGS (1)
  1. GENOTROPIN [Suspect]
     Active Substance: SOMATROPIN
     Dosage: 1.2 MG, DAILY
     Dates: start: 202501

REACTIONS (7)
  - Injection site macule [Unknown]
  - Injection site haemorrhage [Unknown]
  - Injection site pain [Unknown]
  - Wrong technique in device usage process [Unknown]
  - Device leakage [Unknown]
  - Device information output issue [Unknown]
  - Drug dose omission by device [Unknown]
